FAERS Safety Report 7721570-1 (Version None)
Quarter: 2011Q3

REPORT INFORMATION
  Report Type: 
  Country: None (occurrence: None)
  Receive Date: 20110831
  Receipt Date: 20110824
  Transmission Date: 20111222
  Serious: Yes (Hospitalization, Other)
  Sender: FDA-Public Use
  Company Number: US-BAYER-2011-022557

PATIENT
  Age: 42 Year
  Sex: Female
  Weight: 113 kg

DRUGS (14)
  1. INDERAL [Concomitant]
     Indication: BLOOD PRESSURE MANAGEMENT
  2. ABILIFY [Concomitant]
     Indication: ANTIDEPRESSANT THERAPY
  3. MAXZIDE [Concomitant]
     Indication: FLUID RETENTION
  4. TRILIPIX [Concomitant]
     Indication: BLOOD CHOLESTEROL ABNORMAL
  5. WELLBUTRIN [Concomitant]
     Indication: ANTIDEPRESSANT THERAPY
  6. MAXZIDE [Concomitant]
     Indication: BLOOD PRESSURE MANAGEMENT
  7. TRILOSEC [Concomitant]
     Indication: GASTROOESOPHAGEAL REFLUX DISEASE
  8. SYNTHROID [Concomitant]
     Indication: HYPOTHYROIDISM
  9. INDERAL [Concomitant]
     Indication: HEADACHE
  10. AMBIEN [Concomitant]
     Indication: SLEEP DISORDER
  11. YAZ [Suspect]
     Indication: PREMENSTRUAL SYNDROME
     Dosage: UNK
     Route: 048
     Dates: start: 20071013, end: 20080425
  12. DIODAN [Concomitant]
     Indication: BLOOD PRESSURE MANAGEMENT
  13. ASPIRIN [Concomitant]
     Indication: THROMBOSIS
  14. ZOLOFT [Concomitant]
     Indication: ANTIDEPRESSANT THERAPY

REACTIONS (4)
  - INJURY [None]
  - OEDEMA PERIPHERAL [None]
  - PAIN IN EXTREMITY [None]
  - DEEP VEIN THROMBOSIS [None]
